FAERS Safety Report 10513563 (Version 3)
Quarter: 2015Q1

REPORT INFORMATION
  Report Type: Spontaneous
  Country: DE (occurrence: DE)
  Receive Date: 20141013
  Receipt Date: 20150126
  Transmission Date: 20150720
  Serious: Yes (Hospitalization, Other)
  Sender: FDA-Public Use
  Company Number: DE-AMGEN-DEUSP2014069701

PATIENT

DRUGS (7)
  1. ALDACTONE [Suspect]
     Active Substance: SPIRONOLACTONE
     Indication: CARDIAC FAILURE
     Route: 065
  2. PROLIA [Suspect]
     Active Substance: DENOSUMAB
     Indication: OSTEOPOROSIS POSTMENOPAUSAL
     Dosage: 60 MG, Q6MO
     Route: 058
     Dates: start: 201006, end: 201403
  3. GLIMEPIRIDE. [Suspect]
     Active Substance: GLIMEPIRIDE
     Indication: DIABETES MELLITUS
     Route: 065
  4. ALDACTONE [Suspect]
     Active Substance: SPIRONOLACTONE
     Route: 065
  5. CALCIUM [Concomitant]
     Active Substance: CALCIUM
  6. GLIMEPIRIDE. [Suspect]
     Active Substance: GLIMEPIRIDE
     Route: 065
  7. VITAMIN D [Concomitant]
     Active Substance: CHOLECALCIFEROL

REACTIONS (31)
  - Cerebrovascular accident [Unknown]
  - Left ventricular dysfunction [Unknown]
  - Chronic obstructive pulmonary disease [Unknown]
  - Pulmonary congestion [Recovering/Resolving]
  - Coronary artery disease [Unknown]
  - Dementia [Unknown]
  - Hypertension [Unknown]
  - Cerebral atrophy [Unknown]
  - Hyperphosphataemia [Unknown]
  - Osteoarthritis [Unknown]
  - Cardiomegaly [Not Recovered/Not Resolved]
  - Urinary tract infection [Unknown]
  - Diverticulum intestinal [Unknown]
  - Hypocalcaemia [Unknown]
  - Hypothyroidism [Unknown]
  - Hypoglycaemia [Unknown]
  - Cardiac failure [Unknown]
  - Tetany [Unknown]
  - Metabolic acidosis [Unknown]
  - Back pain [Unknown]
  - Hypocalcaemia [Recovered/Resolved]
  - Atrial fibrillation [Unknown]
  - Pleural effusion [Unknown]
  - Acute kidney injury [Unknown]
  - General physical health deterioration [Recovering/Resolving]
  - Ischaemic cardiomyopathy [Unknown]
  - Emphysema [Unknown]
  - Spinal osteoarthritis [Unknown]
  - Hypoparathyroidism secondary [Unknown]
  - Urinary incontinence [Unknown]
  - Type 2 diabetes mellitus [Unknown]

NARRATIVE: CASE EVENT DATE: 20140822
